FAERS Safety Report 9586517 (Version 3)
Quarter: 2013Q4

REPORT INFORMATION
  Report Type: Spontaneous
  Country: US (occurrence: US)
  Receive Date: 20131003
  Receipt Date: 20131121
  Transmission Date: 20140711
  Serious: Yes (Hospitalization)
  Sender: FDA-Public Use
  Company Number: US-JNJFOC-20130917515

PATIENT
  Age: 42 Year
  Sex: Male
  Weight: 95.26 kg

DRUGS (6)
  1. STELARA [Suspect]
     Indication: PSORIASIS
     Route: 058
     Dates: start: 20130205
  2. STELARA [Suspect]
     Indication: PSORIASIS
     Route: 058
     Dates: start: 20130709
  3. STELARA [Suspect]
     Indication: PSORIASIS
     Route: 058
     Dates: start: 20130423
  4. STELARA [Suspect]
     Indication: PSORIASIS
     Route: 058
     Dates: start: 20110113
  5. GLIPIZIDE [Concomitant]
     Indication: DIABETES MELLITUS
     Dosage: JULY 10
     Route: 065
     Dates: start: 201007
  6. LISINOPRIL [Concomitant]
     Indication: HYPERTENSION
     Dosage: FROM NOVEMBER 10 (YEAR UNSPECIFIED)
     Route: 065
     Dates: start: 201110

REACTIONS (3)
  - Cerebrovascular accident [Recovering/Resolving]
  - Blood glucose increased [Recovering/Resolving]
  - Blood pressure increased [Recovering/Resolving]
